FAERS Safety Report 15398406 (Version 1)
Quarter: 2018Q3

REPORT INFORMATION
  Report Type: Report from Study
  Country: CA (occurrence: CA)
  Receive Date: 20180918
  Receipt Date: 20180918
  Transmission Date: 20181010
  Serious: Yes (Hospitalization)
  Sender: FDA-Public Use
  Company Number: CA-ACTELION-A-US2018-171718

PATIENT
  Age: 9 Year
  Sex: Male

DRUGS (6)
  1. NOVO?SPIROZINE [Concomitant]
  2. UPTRAVI [Suspect]
     Active Substance: SELEXIPAG
     Indication: PULMONARY ARTERIAL HYPERTENSION
     Dosage: 700 MCG, UNK
     Route: 048
     Dates: start: 20180205
  3. LASIX [Concomitant]
     Active Substance: FUROSEMIDE
  4. UPTRAVI [Suspect]
     Active Substance: SELEXIPAG
     Dosage: 1000 MCG AND 1200 MCG AT NIGHT
     Route: 048
  5. TADALAFIL [Concomitant]
     Active Substance: TADALAFIL
  6. VOLIBRIS [Concomitant]
     Active Substance: AMBRISENTAN

REACTIONS (3)
  - Atrial septal defect repair [Recovered/Resolved]
  - Flushing [Unknown]
  - Atrial septal defect [Recovered/Resolved]
